FAERS Safety Report 24617409 (Version 1)
Quarter: 2024Q4

REPORT INFORMATION
  Report Type: Spontaneous
  Country: JP (occurrence: JP)
  Receive Date: 20241114
  Receipt Date: 20241114
  Transmission Date: 20250114
  Serious: Yes (Death, Hospitalization, Other)
  Sender: ROCHE
  Company Number: JP-CHUGAI-2024038938AA

PATIENT
  Age: 12 Year
  Sex: Female
  Weight: 15.9 kg

DRUGS (5)
  1. CELLCEPT [Suspect]
     Active Substance: MYCOPHENOLATE MOFETIL
     Indication: Glomerulonephritis
     Dosage: UNK
     Route: 050
  2. OMEPRAZOLE SODIUM [Suspect]
     Active Substance: OMEPRAZOLE SODIUM
     Indication: Product used for unknown indication
     Dosage: UNK
     Route: 065
  3. CEFAZOLIN SODIUM [Suspect]
     Active Substance: CEFAZOLIN SODIUM
     Indication: Product used for unknown indication
     Dosage: UNK
     Route: 065
  4. PREDNISOLONE [Concomitant]
     Active Substance: PREDNISOLONE
     Indication: Glomerulonephritis
     Dosage: UNK
     Route: 050
  5. AZATHIOPRINE [Concomitant]
     Active Substance: AZATHIOPRINE
     Indication: Glomerulonephritis
     Dosage: UNK
     Route: 050

REACTIONS (8)
  - Cytokine storm [Fatal]
  - Haemophagocytic lymphohistiocytosis [Fatal]
  - Renal cyst haemorrhage [Unknown]
  - Cytokine storm [Unknown]
  - Disseminated intravascular coagulation [Unknown]
  - Congenital cystic kidney disease [Unknown]
  - Anaemia [Unknown]
  - Off label use [Unknown]
